FAERS Safety Report 12789875 (Version 1)
Quarter: 2016Q3

REPORT INFORMATION
  Report Type: Spontaneous
  Country: US (occurrence: US)
  Receive Date: 20160928
  Receipt Date: 20160928
  Transmission Date: 20161109
  Serious: No
  Sender: FDA-Public Use
  Company Number: US-KOWA-15US001642

PATIENT
  Sex: Male
  Weight: 102.1 kg

DRUGS (7)
  1. LIVALO [Suspect]
     Active Substance: PITAVASTATIN CALCIUM
     Indication: BLOOD TRIGLYCERIDES INCREASED
  2. COUMADIN [Concomitant]
     Active Substance: WARFARIN SODIUM
  3. LOW DOSE BETA BLOCKER [Concomitant]
     Indication: ATRIAL FIBRILLATION
     Dosage: UNK
  4. DIOVAN [Concomitant]
     Active Substance: VALSARTAN
     Indication: BLOOD PRESSURE MEASUREMENT
  5. LIVALO [Suspect]
     Active Substance: PITAVASTATIN CALCIUM
     Indication: BLOOD CHOLESTEROL INCREASED
     Dosage: 2 MG, UNK
     Route: 048
     Dates: start: 2011
  6. LOW DOSE BETA BLOCKER [Concomitant]
     Indication: ATRIAL FIBRILLATION
  7. XARELTO [Concomitant]
     Active Substance: RIVAROXABAN
     Indication: ANTICOAGULANT THERAPY
     Dosage: UNK

REACTIONS (3)
  - Blood creatinine increased [Recovered/Resolved]
  - Myalgia [Recovered/Resolved]
  - Muscle injury [Recovered/Resolved]
